FAERS Safety Report 16852433 (Version 1)
Quarter: 2019Q3

REPORT INFORMATION
  Report Type: Spontaneous
  Country: US (occurrence: US)
  Receive Date: 20190925
  Receipt Date: 20190925
  Transmission Date: 20191005
  Serious: Yes (Hospitalization)
  Sender: FDA-Public Use
  Company Number: US-ASSERTIO THERAPEUTICS, INC.-US-2018DEP001890

PATIENT

DRUGS (1)
  1. GRALISE [Suspect]
     Active Substance: GABAPENTIN
     Indication: MIGRAINE WITHOUT AURA
     Dosage: 1500 MG, QD
     Route: 048
     Dates: start: 20171009

REACTIONS (3)
  - Drug titration error [Unknown]
  - Drug ineffective for unapproved indication [Recovering/Resolving]
  - Hypersensitivity [Unknown]
